FAERS Safety Report 8588545-4 (Version None)
Quarter: 2012Q3

REPORT INFORMATION
  Report Type: 
  Country: None (occurrence: None)
  Receive Date: 20120813
  Receipt Date: 20120810
  Transmission Date: 20120928
  Serious: Yes (Disabling, Other)
  Sender: FDA-Public Use
  Company Number: US-PFIZER INC-2012195958

PATIENT
  Age: 41 Year
  Sex: Female
  Weight: 89.796 kg

DRUGS (3)
  1. CHANTIX [Suspect]
     Dosage: UNK
     Route: 048
     Dates: start: 20120101
  2. CHANTIX [Suspect]
     Dosage: UNK
     Route: 048
  3. CHANTIX [Suspect]
     Indication: SMOKING CESSATION THERAPY
     Dosage: 0.5 MG, 1X/DAY
     Route: 048

REACTIONS (3)
  - PAIN [None]
  - BACK INJURY [None]
  - SPINAL FRACTURE [None]
